FAERS Safety Report 9851201 (Version 1)
Quarter: 2014Q1

REPORT INFORMATION
  Report Type: Spontaneous
  Country: US (occurrence: US)
  Receive Date: 20140128
  Receipt Date: 20140128
  Transmission Date: 20141002
  Serious: No
  Sender: FDA-Public Use
  Company Number: US-GILEAD-2014-0093095

PATIENT
  Age: 45 Year
  Sex: Female

DRUGS (2)
  1. LETAIRIS [Suspect]
     Indication: PRODUCT USED FOR UNKNOWN INDICATION
     Dosage: 10 MG, QD
     Dates: start: 201207
  2. OXYGEN [Concomitant]

REACTIONS (9)
  - Fall [Unknown]
  - Anxiety [Not Recovered/Not Resolved]
  - Feeling hot [Unknown]
  - Hyperhidrosis [Unknown]
  - Anxiety [Unknown]
  - Feeding tube complication [Unknown]
  - Dyspnoea [Unknown]
  - Dyspnoea exertional [Not Recovered/Not Resolved]
  - Headache [Unknown]
